FAERS Safety Report 10213373 (Version 1)
Quarter: 2014Q2

REPORT INFORMATION
  Report Type: Spontaneous
  Country: CA (occurrence: None)
  Receive Date: 20140529
  Receipt Date: 20140529
  Transmission Date: 20141212
  Serious: Yes (Hospitalization)
  Sender: FDA-Public Use
  Company Number: 2014RN000019

PATIENT
  Sex: Male

DRUGS (8)
  1. ACYCLOVIR (ACYCLOVIR) [Suspect]
     Indication: HERPES ZOSTER
     Dates: start: 20130614
  2. DILTIAZEM HYDROCHLORIDE (DILTIAZEM HYDROCHLORIDE) [Concomitant]
  3. SYNTHROID (LEVOTHYROXINE SODIUM) [Concomitant]
  4. RAMIPRIL (RAMIPRIL) [Concomitant]
  5. WARFARIN SODIUM (WARFARIN SODIUM) [Concomitant]
  6. TYLENOL WITH CODEIN #3 (CAFFEINE, CODEINE PHOSHATE, PARACETAMOL) [Concomitant]
  7. BECLOMETHASONE DIPROPIONATE [Concomitant]
  8. NASAL PREPARATIONS (NASAL RINSE) [Concomitant]

REACTIONS (3)
  - Diarrhoea [None]
  - Dehydration [None]
  - Headache [None]
